FAERS Safety Report 9194218 (Version 2)
Quarter: 2013Q2

REPORT INFORMATION
  Report Type: Spontaneous
  Country: JP (occurrence: JP)
  Receive Date: 20130327
  Receipt Date: 20130423
  Transmission Date: 20140414
  Serious: Yes (Death)
  Sender: FDA-Public Use
  Company Number: JP-OTSUKA-JP-2013-10740

PATIENT
  Age: 60 Year
  Sex: Male

DRUGS (2)
  1. PLETAAL [Suspect]
     Indication: CEREBRAL INFARCTION
     Route: 048
  2. WARFARIN [Concomitant]
     Route: 048

REACTIONS (1)
  - Thalamus haemorrhage [Fatal]
